FAERS Safety Report 15274088 (Version 1)
Quarter: 2018Q3

REPORT INFORMATION
  Report Type: Spontaneous
  Country: US (occurrence: US)
  Receive Date: 20180814
  Receipt Date: 20180814
  Transmission Date: 20181010
  Serious: No
  Sender: FDA-Public Use
  Company Number: US-ELI_LILLY_AND_COMPANY-US201808005961

PATIENT
  Age: 61 Year
  Sex: Female

DRUGS (2)
  1. ALIMTA [Suspect]
     Active Substance: PEMETREXED DISODIUM
     Indication: NON-SMALL CELL LUNG CANCER
     Dosage: 780 MG, UNKNOWN
     Route: 065
     Dates: start: 20170109, end: 20170425
  2. CISPLATIN. [Concomitant]
     Active Substance: CISPLATIN
     Indication: PRODUCT USED FOR UNKNOWN INDICATION
     Dosage: UNK UNK, UNKNOWN
     Route: 065

REACTIONS (12)
  - Headache [Unknown]
  - Palpitations [Unknown]
  - Decreased appetite [Unknown]
  - Anaemia [Unknown]
  - Nausea [Unknown]
  - Sinus congestion [Unknown]
  - Fatigue [Unknown]
  - Nasal dryness [Unknown]
  - Dyspnoea exertional [Unknown]
  - Hot flush [Unknown]
  - Constipation [Unknown]
  - Neutropenia [Unknown]

NARRATIVE: CASE EVENT DATE: 20170207
